FAERS Safety Report 25779854 (Version 1)
Quarter: 2025Q3

REPORT INFORMATION
  Report Type: Spontaneous
  Country: CA (occurrence: CA)
  Receive Date: 20250909
  Receipt Date: 20250909
  Transmission Date: 20251021
  Serious: Yes (Hospitalization)
  Sender: ELI LILLY AND COMPANY
  Company Number: CA-ELI_LILLY_AND_COMPANY-CA202508029619

PATIENT
  Age: 28 Year
  Sex: Female

DRUGS (5)
  1. MOUNJARO [Suspect]
     Active Substance: TIRZEPATIDE
     Indication: Weight control
     Route: 058
     Dates: start: 202508
  2. MOUNJARO [Suspect]
     Active Substance: TIRZEPATIDE
     Indication: Glucose tolerance impaired
     Route: 058
     Dates: start: 202504
  3. MOUNJARO [Suspect]
     Active Substance: TIRZEPATIDE
     Route: 058
     Dates: start: 202505
  4. MOUNJARO [Suspect]
     Active Substance: TIRZEPATIDE
     Route: 058
     Dates: start: 202506
  5. MOUNJARO [Suspect]
     Active Substance: TIRZEPATIDE
     Route: 058
     Dates: start: 202507

REACTIONS (3)
  - Kidney infection [Recovered/Resolved]
  - Constipation [Recovered/Resolved]
  - Off label use [Unknown]

NARRATIVE: CASE EVENT DATE: 20250801
